FAERS Safety Report 5442008-3 (Version None)
Quarter: 2007Q3

REPORT INFORMATION
  Report Type: 
  Country: None (occurrence: None)
  Receive Date: 20070829
  Receipt Date: 20070815
  Transmission Date: 20080115
  Serious: Yes (Hospitalization, Other)
  Sender: FDA-Public Use
  Company Number: 142971USA

PATIENT
  Age: 66 Year
  Sex: Male

DRUGS (6)
  1. MERCAPTOPURINE [Suspect]
     Indication: CROHN'S DISEASE
  2. AZATHIOPRINE [Suspect]
  3. PREDNISONE [Concomitant]
  4. LANSOPRAZOLE [Concomitant]
  5. TAMSULOSIN HCL [Concomitant]
  6. ALPRAZOLAM [Concomitant]

REACTIONS (6)
  - DIFFUSE ALVEOLAR DAMAGE [None]
  - GENERAL PHYSICAL HEALTH DETERIORATION [None]
  - INTERSTITIAL LUNG DISEASE [None]
  - MYALGIA [None]
  - PULMONARY TOXICITY [None]
  - RESPIRATORY FAILURE [None]
